FAERS Safety Report 22781177 (Version 2)
Quarter: 2023Q4

REPORT INFORMATION
  Report Type: Spontaneous
  Country: US (occurrence: US)
  Receive Date: 20230803
  Receipt Date: 20231018
  Transmission Date: 20240109
  Serious: Yes (Other)
  Sender: FDA-Public Use
  Company Number: US-JNJFOC-20230760410

PATIENT

DRUGS (1)
  1. DARZALEX FASPRO [Suspect]
     Active Substance: DARATUMUMAB\HYALURONIDASE-FIHJ
     Indication: Plasma cell myeloma
     Dosage: STARTED SINCE APRIL OR MAY 2022, WEEKLY FOR 20 WEEKS, THEN MONTHLY FOR 6-7 MONTHS, AND NOW EVERY 8 W
     Route: 058

REACTIONS (2)
  - Stem cell transplant [Unknown]
  - Off label use [Unknown]
